FAERS Safety Report 13325859 (Version 2)
Quarter: 2017Q3

REPORT INFORMATION
  Report Type: Spontaneous
  Country: US (occurrence: US)
  Receive Date: 20170310
  Receipt Date: 20170728
  Transmission Date: 20171127
  Serious: Yes (Death)
  Sender: FDA-Public Use
  Company Number: US-VIFOR (INTERNATIONAL) INC.-VIT-2017-02436

PATIENT
  Age: 69 Year
  Sex: Female
  Weight: 56.3 kg

DRUGS (12)
  1. JANUVIA [Concomitant]
     Active Substance: SITAGLIPTIN PHOSPHATE
  2. HYDROCHLOROTHIAZIDE/LISINOPRIL [Concomitant]
  3. AMLODIPINE [Concomitant]
     Active Substance: AMLODIPINE BESYLATE
  4. VITAMINS NOS [Concomitant]
     Active Substance: VITAMINS
  5. PANTOPRAZOLE [Concomitant]
     Active Substance: PANTOPRAZOLE
  6. CARVEDILOL. [Concomitant]
     Active Substance: CARVEDILOL
  7. VELTASSA [Suspect]
     Active Substance: PATIROMER
     Indication: HYPERKALAEMIA
     Route: 048
     Dates: start: 20160809
  8. GLIPIZIDE. [Concomitant]
     Active Substance: GLIPIZIDE
  9. IRON [Concomitant]
     Active Substance: IRON
     Route: 042
  10. ATORVASTATIN [Concomitant]
     Active Substance: ATORVASTATIN
  11. GABAPENTIN. [Concomitant]
     Active Substance: GABAPENTIN
  12. ACETYLSALICYLIC ACID [Concomitant]
     Active Substance: ASPIRIN

REACTIONS (1)
  - Death [Fatal]

NARRATIVE: CASE EVENT DATE: 20161120
